FAERS Safety Report 9906983 (Version 1)
Quarter: 2014Q1

REPORT INFORMATION
  Report Type: Spontaneous
  Country: BR (occurrence: BR)
  Receive Date: 20140218
  Receipt Date: 20140218
  Transmission Date: 20141002
  Serious: Yes (Hospitalization, Other)
  Sender: FDA-Public Use
  Company Number: BR-ABBVIE-14P-020-1201465-00

PATIENT
  Age: 24 Year
  Sex: Male
  Weight: 64 kg

DRUGS (5)
  1. HUMIRA [Suspect]
     Indication: CROHN^S DISEASE
     Route: 058
     Dates: start: 20120201
  2. HUMIRA [Suspect]
     Route: 058
  3. HUMIRA [Suspect]
     Route: 058
     Dates: end: 201206
  4. HUMIRA [Suspect]
     Route: 058
     Dates: start: 201302
  5. AZATHIOPRINE [Concomitant]
     Indication: CROHN^S DISEASE
     Route: 048
     Dates: start: 2013

REACTIONS (7)
  - Abdominal adhesions [Unknown]
  - Pneumonia [Recovered/Resolved]
  - Malaise [Unknown]
  - Pain [Unknown]
  - Gait disturbance [Unknown]
  - Weight decreased [Unknown]
  - Fistula [Unknown]
